FAERS Safety Report 6344763-7 (Version None)
Quarter: 2009Q3

REPORT INFORMATION
  Report Type: 
  Country: None (occurrence: None)
  Receive Date: 20090904
  Receipt Date: 20090824
  Transmission Date: 20100115
  Serious: Yes (Other)
  Sender: FDA-Public Use
  Company Number: A-US2004-08297

PATIENT
  Age: 69 Year
  Sex: Female

DRUGS (7)
  1. TRACLEER [Suspect]
     Indication: PULMONARY ARTERIAL HYPERTENSION
     Dosage: ORAL
     Route: 048
     Dates: start: 20030403
  2. FISH OIL (FISH OIL) [Concomitant]
  3. ACTOS [Concomitant]
  4. EFFEXOR [Concomitant]
  5. THYROID TAB [Concomitant]
  6. LUMIGAN [Concomitant]
  7. HOMATROPINE (HOMATROPINE) [Concomitant]

REACTIONS (7)
  - ALOPECIA [None]
  - DRY EYE [None]
  - DRY MOUTH [None]
  - GLAUCOMA [None]
  - HAIR TEXTURE ABNORMAL [None]
  - MALAISE [None]
  - MEIBOMIANITIS [None]
